FAERS Safety Report 8942547 (Version 1)
Quarter: 2012Q4

REPORT INFORMATION
  Report Type: 
  Country: US (occurrence: US)
  Receive Date: 20121204
  Receipt Date: 20121204
  Transmission Date: 20130627
  Serious: Yes (Other)
  Sender: FDA-Public Use
  Company Number: US-ELI_LILLY_AND_COMPANY-US201210007489

PATIENT
  Sex: Male
  Weight: 88.89 kg

DRUGS (1)
  1. CIALIS [Suspect]
     Indication: BENIGN PROSTATIC HYPERPLASIA
     Dosage: 5 mg, each morning
     Route: 048
     Dates: start: 201203

REACTIONS (1)
  - Chest discomfort [Recovered/Resolved]
